FAERS Safety Report 18822961 (Version 1)
Quarter: 2021Q1

REPORT INFORMATION
  Report Type: Spontaneous
  Country: US (occurrence: US)
  Receive Date: 20210201
  Receipt Date: 20210201
  Transmission Date: 20210419
  Serious: No
  Sender: FDA-Public Use
  Company Number: US-EPIHEALTH-2020-US-011810

PATIENT
  Age: 41 Year
  Sex: Male
  Weight: 70.31 kg

DRUGS (1)
  1. RHOFADE [Suspect]
     Active Substance: OXYMETAZOLINE HYDROCHLORIDE
     Indication: ROSACEA
     Dosage: APPLIED THIN LAYER TO SKIN AS DIRECTED EVERY OTHER DAY
     Route: 061
     Dates: start: 20200523, end: 20200529

REACTIONS (2)
  - Acne cystic [Recovering/Resolving]
  - Application site dryness [Recovering/Resolving]

NARRATIVE: CASE EVENT DATE: 20200528
